FAERS Safety Report 9533954 (Version 1)
Quarter: 2013Q3

REPORT INFORMATION
  Report Type: Spontaneous
  Country: US (occurrence: US)
  Receive Date: 20130918
  Receipt Date: 20130918
  Transmission Date: 20140515
  Serious: No
  Sender: FDA-Public Use
  Company Number: US-PURDUE-USA-2011-0078519

PATIENT
  Sex: Female

DRUGS (3)
  1. BUTRANS [Suspect]
     Indication: MUSCULOSKELETAL PAIN
     Dosage: 10 MCG, Q1H
  2. BUTRANS [Suspect]
     Indication: NECK PAIN
  3. PERCOCET                           /00867901/ [Concomitant]
     Indication: PAIN

REACTIONS (1)
  - Drug ineffective [Unknown]
